FAERS Safety Report 4409731-0 (Version None)
Quarter: 2004Q3

REPORT INFORMATION
  Report Type: 
  Country: None (occurrence: None)
  Receive Date: 20040723
  Receipt Date: 20040719
  Transmission Date: 20050211
  Serious: Yes (Other)
  Sender: FDA-Public Use
  Company Number: 2004UW14954

PATIENT
  Age: 60 Year
  Sex: Male
  Weight: 79.3795 kg

DRUGS (5)
  1. SEROQUEL [Suspect]
     Indication: HEAD INJURY
     Dosage: 25 MG DAILY
     Dates: start: 20020916
  2. NORVASC [Concomitant]
  3. LIPITOR [Concomitant]
  4. PRADIN [Concomitant]
  5. COZAAR [Concomitant]

REACTIONS (1)
  - THROMBOCYTOPENIA [None]
